FAERS Safety Report 6674843-8 (Version None)
Quarter: 2010Q1

REPORT INFORMATION
  Report Type: 
  Country: None (occurrence: None)
  Receive Date: 20100331
  Receipt Date: 20100114
  Transmission Date: 20100710
  Serious: Yes (Hospitalization)
  Sender: FDA-Public Use
  Company Number: 2010006262

PATIENT
  Age: 81 Year
  Sex: Female
  Weight: 61.2 kg

DRUGS (7)
  1. SUTENT [Suspect]
     Indication: RENAL CANCER
     Dosage: DAILY FOR 4 WEEKS, ORAL
     Route: 048
     Dates: start: 20090101, end: 20090101
  2. FUROSEMIDE [Concomitant]
  3. ALPRAZOLAM [Concomitant]
  4. LORAZEPAM [Concomitant]
  5. DIOVAN [Concomitant]
  6. METOPROLOL TARTRATE [Concomitant]
  7. LANOXIN [Concomitant]

REACTIONS (5)
  - CONFUSIONAL STATE [None]
  - DECREASED APPETITE [None]
  - HAEMOGLOBIN DECREASED [None]
  - WEIGHT DECREASED [None]
  - YELLOW SKIN [None]
